FAERS Safety Report 21741324 (Version 1)
Quarter: 2022Q4

REPORT INFORMATION
  Report Type: Spontaneous
  Country: US (occurrence: US)
  Receive Date: 20221216
  Receipt Date: 20221216
  Transmission Date: 20230113
  Serious: No
  Sender: FDA-Public Use
  Company Number: US-BIOVITRUM-2022US14667

PATIENT
  Sex: Female
  Weight: 10 kg

DRUGS (12)
  1. SYNAGIS [Suspect]
     Active Substance: PALIVIZUMAB
     Indication: Athelia
     Dosage: SYNAGIS 100 MG SDV/INJ PF 1 ML 1S
     Dates: start: 202111
  2. GENTAMICIN SULFATE [Concomitant]
     Active Substance: GENTAMICIN SULFATE
     Dosage: 20 MG/2 ML VIAL
  3. SODIUM CHLORIDE [Concomitant]
     Active Substance: SODIUM CHLORIDE
     Dosage: 3.5 % VIAL-NEB
  4. DULERA [Concomitant]
     Active Substance: FORMOTEROL FUMARATE DIHYDRATE\MOMETASONE FUROATE
     Dosage: 100-5 MCG HFA AER AD
  5. TRACLEER [Concomitant]
     Active Substance: BOSENTAN
     Dosage: 32 MG TAB SUSP
  6. SILDENAFIL CITRATE [Concomitant]
     Active Substance: SILDENAFIL CITRATE
  7. SYNAGIS [Suspect]
     Active Substance: PALIVIZUMAB
     Indication: Premature baby
  8. ALBUTEROL SULFATE [Concomitant]
     Active Substance: ALBUTEROL SULFATE
  9. SYNAGIS [Suspect]
     Active Substance: PALIVIZUMAB
     Indication: Haemorrhage
  10. SYNAGIS [Suspect]
     Active Substance: PALIVIZUMAB
     Indication: Dependence on respirator
  11. SYNAGIS [Suspect]
     Active Substance: PALIVIZUMAB
     Indication: Low birth weight baby
  12. SYNAGIS [Suspect]
     Active Substance: PALIVIZUMAB
     Indication: Immune system disorder

REACTIONS (2)
  - Malaise [Unknown]
  - Pyrexia [Unknown]
